FAERS Safety Report 5682905-7 (Version None)
Quarter: 2008Q1

REPORT INFORMATION
  Report Type: 
  Country: None (occurrence: None)
  Receive Date: 20080325
  Receipt Date: 20080317
  Transmission Date: 20080703
  Serious: Yes (Other)
  Sender: FDA-Public Use
  Company Number: 2008006625

PATIENT
  Age: 45 Year
  Sex: Male
  Weight: 83.9154 kg

DRUGS (1)
  1. LISTERINE WHITENING PRE-BRUSH RINSE (NO ACTIVE INGREDIENT) [Suspect]
     Indication: DENTAL CARE
     Dosage: 30 ML 3 TIMES A DAY (3 IN 1 D), ORAL
     Route: 048
     Dates: start: 20080314

REACTIONS (3)
  - GINGIVAL SWELLING [None]
  - GINGIVITIS [None]
  - GLOSSODYNIA [None]
